FAERS Safety Report 8463550-7 (Version None)
Quarter: 2012Q2

REPORT INFORMATION
  Report Type: 
  Country: None (occurrence: None)
  Receive Date: 20120625
  Receipt Date: 20120615
  Transmission Date: 20120825
  Serious: Yes (Hospitalization, Other)
  Sender: FDA-Public Use
  Company Number: DE-JNJFOC-20120605566

PATIENT
  Sex: Female

DRUGS (6)
  1. CIPROFLOXACIN [Concomitant]
  2. XARELTO [Suspect]
     Indication: ATRIAL FIBRILLATION
     Route: 048
     Dates: start: 20110411
  3. PLAVIX [Concomitant]
     Indication: ANTICOAGULANT THERAPY
     Dosage: 75 MG, OM
  4. DELIX PLUS [Concomitant]
     Dosage: 1 DF, OM
  5. XARELTO [Suspect]
     Indication: CEREBROVASCULAR ACCIDENT PROPHYLAXIS
     Route: 048
     Dates: start: 20110411
  6. DIGIMERCK [Concomitant]
     Dosage: 0.07, OM

REACTIONS (1)
  - VASCULITIS NECROTISING [None]
